FAERS Safety Report 18780011 (Version 2)
Quarter: 2021Q1

REPORT INFORMATION
  Report Type: Other
  Country: FR (occurrence: FR)
  Receive Date: 20210125
  Receipt Date: 20210331
  Transmission Date: 20210419
  Serious: Yes (Other)
  Sender: FDA-Public Use
  Company Number: FR-CADILA HEALTHCARE LIMITED-FR-ZYDUS-061316

PATIENT

DRUGS (3)
  1. LINEZOLIDE [Suspect]
     Active Substance: LINEZOLID
     Indication: PERITONITIS
     Dosage: 1200 MILLIGRAM, QD
     Route: 048
     Dates: start: 20201207, end: 20201227
  2. AUGMENTIN [Suspect]
     Active Substance: AMOXICILLIN\CLAVULANATE POTASSIUM
     Indication: PERITONITIS
     Dosage: 6 DOSAGE FORM, QD
     Route: 048
     Dates: start: 20201207
  3. FLUCONAZOLE. [Suspect]
     Active Substance: FLUCONAZOLE
     Indication: PERITONITIS
     Dosage: 200 MILLIGRAM, QD
     Route: 048
     Dates: start: 20201207

REACTIONS (2)
  - Pancytopenia [Recovered/Resolved]
  - Aplasia pure red cell [Recovered/Resolved]

NARRATIVE: CASE EVENT DATE: 202012
